FAERS Safety Report 5695319-0 (Version None)
Quarter: 2008Q2

REPORT INFORMATION
  Report Type: 
  Country: None (occurrence: None)
  Receive Date: 20080404
  Receipt Date: 20080331
  Transmission Date: 20081010
  Serious: Yes (Other)
  Sender: FDA-Public Use
  Company Number: US-PFIZER INC-2008028679

PATIENT
  Sex: Female
  Weight: 81.6 kg

DRUGS (3)
  1. GEODON [Suspect]
     Indication: BIPOLAR DISORDER
     Dates: start: 20070901, end: 20071114
  2. ANTIHYPERTENSIVES [Concomitant]
  3. EFFEXOR [Concomitant]

REACTIONS (7)
  - BRUXISM [None]
  - DYSKINESIA [None]
  - DYSPNOEA [None]
  - LIMB DISCOMFORT [None]
  - SALIVARY GLAND NEOPLASM [None]
  - TIC [None]
  - WEIGHT INCREASED [None]
